FAERS Safety Report 6948577-6 (Version None)
Quarter: 2010Q3

REPORT INFORMATION
  Report Type: 
  Country: None (occurrence: None)
  Receive Date: 20100828
  Receipt Date: 20091118
  Transmission Date: 20110219
  Serious: No
  Sender: FDA-Public Use
  Company Number: US-ABBOTT-09P-163-0609277-00

PATIENT
  Sex: Male
  Weight: 97.61 kg

DRUGS (2)
  1. NIASPAN [Suspect]
     Indication: BLOOD CHOLESTEROL INCREASED
     Dosage: 1 1000MG TAB AND HALF OF ANOTHER 1000MG
  2. NIASPAN [Suspect]
     Dosage: AT BEDTIME
     Dates: start: 20080101

REACTIONS (1)
  - WRONG TECHNIQUE IN DRUG USAGE PROCESS [None]
